FAERS Safety Report 9012693 (Version 2)
Quarter: 2013Q2

REPORT INFORMATION
  Report Type: Spontaneous
  Country: US (occurrence: US)
  Receive Date: 20130114
  Receipt Date: 20130516
  Transmission Date: 20140414
  Serious: No
  Sender: FDA-Public Use
  Company Number: US-009507513-1301USA005861

PATIENT
  Age: 18 Year
  Sex: Female
  Weight: 70.75 kg

DRUGS (1)
  1. NEXPLANON [Suspect]
     Indication: CONTRACEPTION
     Dosage: 3 YEARS IMPLANT
     Route: 059
     Dates: start: 20121108

REACTIONS (6)
  - Hypersensitivity [Recovered/Resolved]
  - Implant site erythema [Recovered/Resolved]
  - Local swelling [Recovered/Resolved]
  - Implant site irritation [Recovered/Resolved]
  - Discomfort [Recovered/Resolved]
  - Surgery [Unknown]
